FAERS Safety Report 8932557 (Version 1)
Quarter: 2012Q4

REPORT INFORMATION
  Report Type: Spontaneous
  Country: US (occurrence: None)
  Receive Date: 20121121
  Receipt Date: 20121121
  Transmission Date: 20130627
  Serious: Yes (Life-Threatening, Hospitalization, Other)
  Sender: FDA-Public Use
  Company Number: None

PATIENT
  Sex: Male
  Weight: 79.83 kg

DRUGS (2)
  1. ALLOPURINOL 300 MG TAB NOR [Suspect]
     Indication: SUPPORTIVE CARE
     Dosage: one tab per day before chemotherapy
     Dates: start: 20120930, end: 20121016
  2. ALLOPURINOL 300 MG TAB NOR [Suspect]
     Indication: RENAL DISORDER
     Dosage: one tab per day before chemotherapy
     Dates: start: 20120930, end: 20121016

REACTIONS (1)
  - Stevens-Johnson syndrome [None]
